FAERS Safety Report 4359427-9 (Version None)
Quarter: 2004Q2

REPORT INFORMATION
  Report Type: 
  Country: None (occurrence: None)
  Receive Date: 20040512
  Receipt Date: 20040422
  Transmission Date: 20050107
  Serious: Yes (Hospitalization, Disabling, Other)
  Sender: FDA-Public Use
  Company Number: US_991131419

PATIENT
  Age: 62 Year
  Sex: Female
  Weight: 101 kg

DRUGS (3)
  1. HUMULIN 70/30 [Suspect]
     Indication: DIABETES MELLITUS
     Dosage: 70 U/2 DAY
     Dates: start: 19970101
  2. HUMULIN R [Suspect]
     Indication: DIABETES MELLITUS
  3. ASPIRIN [Concomitant]

REACTIONS (9)
  - ANKLE FRACTURE [None]
  - CEREBROVASCULAR ACCIDENT [None]
  - EYE HAEMORRHAGE [None]
  - FINGER AMPUTATION [None]
  - FOOT AMPUTATION [None]
  - HYPERGLYCAEMIA [None]
  - OSTEOGENESIS IMPERFECTA [None]
  - SELF-MEDICATION [None]
  - WEIGHT DECREASED [None]
